FAERS Safety Report 4390918-0 (Version None)
Quarter: 2004Q2

REPORT INFORMATION
  Report Type: 
  Country: None (occurrence: None)
  Receive Date: 20040630
  Receipt Date: 20040617
  Transmission Date: 20050107
  Serious: Yes (Other)
  Sender: FDA-Public Use
  Company Number: 2004041167

PATIENT
  Age: 49 Year
  Sex: Male
  Weight: 88.4514 kg

DRUGS (2)
  1. LIPITOR [Suspect]
     Indication: BLOOD CHOLESTEROL INCREASED
     Dosage: 10 MG (10 MG, 1 IN 1 D), ORAL
     Route: 048
     Dates: start: 20030901, end: 20031101
  2. HYDROCHLOROTHIAZIDE [Concomitant]

REACTIONS (4)
  - ERECTILE DYSFUNCTION [None]
  - INSOMNIA [None]
  - MENISCUS LESION [None]
  - MYALGIA [None]
